FAERS Safety Report 8954885 (Version 1)
Quarter: 2012Q4

REPORT INFORMATION
  Report Type: 
  Country: CO (occurrence: CO)
  Receive Date: 20121207
  Receipt Date: 20121207
  Transmission Date: 20130627
  Serious: Yes (Other)
  Sender: FDA-Public Use
  Company Number: CO-VERTEX PHARMACEUTICALS INC.-2012-025817

PATIENT
  Age: 55 Year
  Sex: Male
  Weight: 75 kg

DRUGS (3)
  1. INCIVO [Suspect]
     Indication: HEPATITIS C
     Dosage: Dosage Form: Tablet
     Route: 048
     Dates: start: 20121119
  2. PEG-INTERFERON [Concomitant]
     Dosage: Dosage Form: Unknown
     Route: 065
  3. RIBAVIRIN [Concomitant]
     Dosage: Dosage Form: Unknown
     Route: 065

REACTIONS (1)
  - Blood disorder [Unknown]
